FAERS Safety Report 6401908-8 (Version None)
Quarter: 2009Q4

REPORT INFORMATION
  Report Type: 
  Country: None (occurrence: None)
  Receive Date: 20091015
  Receipt Date: 20091006
  Transmission Date: 20100525
  Serious: Yes (Hospitalization)
  Sender: FDA-Public Use
  Company Number: A0716226A

PATIENT
  Age: 58 Year
  Sex: Female
  Weight: 90.9 kg

DRUGS (3)
  1. AVANDIA [Suspect]
     Dosage: 4MG PER DAY
     Dates: start: 20050101, end: 20051209
  2. GLUCOPHAGE [Concomitant]
     Dates: start: 20030101
  3. METFORMIN HYDROCHLORIDE [Concomitant]
     Dates: start: 20030101

REACTIONS (7)
  - ANXIETY [None]
  - ASTHENIA [None]
  - FEAR [None]
  - HEART INJURY [None]
  - MYOCARDIAL INFARCTION [None]
  - NERVE INJURY [None]
  - RENAL INJURY [None]
